FAERS Safety Report 19174376 (Version 1)
Quarter: 2021Q2

REPORT INFORMATION
  Report Type: Spontaneous
  Country: US (occurrence: US)
  Receive Date: 20210423
  Receipt Date: 20210423
  Transmission Date: 20210717
  Serious: Yes (Other)
  Sender: FDA-Public Use
  Company Number: US-ATHENEX PHARMACEUTICAL SOLUTION-2109695

PATIENT
  Age: 53 Year
  Sex: Male
  Weight: 74.5 kg

DRUGS (1)
  1. NOREPINEPHRINE INJECTION IN 0.9%SOIUM CHLORIDE [Suspect]
     Active Substance: NOREPINEPHRINE
     Indication: HYPOTENSION
     Route: 041
     Dates: start: 20210415, end: 20210415

REACTIONS (1)
  - Drug ineffective [Unknown]

NARRATIVE: CASE EVENT DATE: 20210415
